FAERS Safety Report 6746429-8 (Version None)
Quarter: 2010Q2

REPORT INFORMATION
  Report Type: 
  Country: None (occurrence: None)
  Receive Date: 20100528
  Receipt Date: 20100521
  Transmission Date: 20101027
  Serious: Yes (Death, Hospitalization)
  Sender: FDA-Public Use
  Company Number: PL-BAXTER-2010BH013902

PATIENT
  Age: 67 Year
  Sex: Male

DRUGS (5)
  1. DIANEAL [Suspect]
     Indication: PERITONEAL DIALYSIS
     Route: 033
     Dates: end: 20091123
  2. DIANEAL [Suspect]
     Route: 033
     Dates: end: 20091123
  3. NUTRINEAL [Concomitant]
     Indication: PERITONEAL DIALYSIS
     Route: 033
  4. EXTRANEAL [Concomitant]
     Indication: PERITONEAL DIALYSIS
     Route: 033
  5. DIANEAL [Concomitant]
     Indication: PERITONEAL DIALYSIS
     Route: 033

REACTIONS (2)
  - INTESTINAL OBSTRUCTION [None]
  - PERITONITIS [None]
